FAERS Safety Report 10983716 (Version 2)
Quarter: 2015Q2

REPORT INFORMATION
  Report Type: Spontaneous
  Country: US (occurrence: US)
  Receive Date: 20150403
  Receipt Date: 20150406
  Transmission Date: 20150821
  Serious: Yes (Hospitalization, Other)
  Sender: FDA-Public Use
  Company Number: US-PFIZER INC-2015115411

PATIENT
  Age: 54 Year
  Sex: Female
  Weight: 64 kg

DRUGS (5)
  1. HUMIRA [Concomitant]
     Active Substance: ADALIMUMAB
     Dosage: 40 MG, EVERY OTHER TUESDAY
  2. ATIVAN [Suspect]
     Active Substance: LORAZEPAM
     Indication: ANXIETY
     Dosage: UNK
     Route: 042
  3. XANAX [Suspect]
     Active Substance: ALPRAZOLAM
     Indication: ANXIETY
     Dosage: 0.25 MG, TWICE A DAY AS NEEDED
     Route: 048
  4. XANAX [Suspect]
     Active Substance: ALPRAZOLAM
     Dosage: 0.5 MG, TWICE A DAY AS NEEDED
     Route: 048
  5. HYDROCODONE [Concomitant]
     Active Substance: HYDROCODONE
     Indication: PAIN
     Dosage: 10/325MG TABLET EVERY FOUR HOURS AS NEEDED
     Route: 048

REACTIONS (15)
  - Intestinal obstruction [Unknown]
  - Anaemia [Recovered/Resolved]
  - Crying [Unknown]
  - Dehydration [Not Recovered/Not Resolved]
  - Irritability [Unknown]
  - Renal failure [Not Recovered/Not Resolved]
  - Crohn^s disease [Unknown]
  - Blood potassium abnormal [Not Recovered/Not Resolved]
  - Kidney enlargement [Unknown]
  - Nausea [Unknown]
  - Feeling abnormal [Unknown]
  - Condition aggravated [Unknown]
  - Drug ineffective [Unknown]
  - Fluid intake reduced [Unknown]
  - Emotional disorder [Unknown]

NARRATIVE: CASE EVENT DATE: 201311
